FAERS Safety Report 9329233 (Version 1)
Quarter: 2013Q2

REPORT INFORMATION
  Report Type: Spontaneous
  Country: FR (occurrence: FR)
  Receive Date: 20130604
  Receipt Date: 20130604
  Transmission Date: 20140414
  Serious: Yes (Life-Threatening, Hospitalization)
  Sender: FDA-Public Use
  Company Number: FR-GLAXOSMITHKLINE-B0888086A

PATIENT
  Age: 46 Year
  Sex: Female

DRUGS (2)
  1. TYVERB [Suspect]
     Indication: BREAST CANCER METASTATIC
     Dosage: 1250MG PER DAY
     Route: 048
     Dates: start: 20130405, end: 20130410
  2. XELODA [Suspect]
     Indication: BREAST CANCER METASTATIC
     Dosage: 1500MG TWICE PER DAY
     Route: 048
     Dates: start: 20130405, end: 20130410

REACTIONS (2)
  - Cardiac failure [Recovering/Resolving]
  - Ejection fraction decreased [Not Recovered/Not Resolved]
